FAERS Safety Report 5822595-3 (Version None)
Quarter: 2008Q3

REPORT INFORMATION
  Report Type: 
  Country: None (occurrence: None)
  Receive Date: 20080721
  Receipt Date: 20080708
  Transmission Date: 20090109
  Serious: Yes (Other)
  Sender: FDA-Public Use
  Company Number: RENA-1000178

PATIENT
  Age: 70 Year
  Sex: Female

DRUGS (9)
  1. RENAGEL [Suspect]
     Indication: HYPERPHOSPHATAEMIA
     Dosage: QD, ORAL; QD, ORAL
     Route: 048
     Dates: end: 20080210
  2. RENAGEL [Suspect]
     Indication: HYPERPHOSPHATAEMIA
     Dosage: QD, ORAL; QD, ORAL
     Route: 048
     Dates: start: 20080321
  3. FOSRENOL [Suspect]
     Indication: DRUG USE FOR UNKNOWN INDICATION
     Dates: start: 20080301, end: 20080501
  4. ACETAMINOPHEN [Concomitant]
  5. DURAGESIC-100 [Concomitant]
  6. CLONAZEPAM [Concomitant]
  7. HEXAQUIN (MELALEUCA VIRIDIFLORA OIL, QUININE BENZOATE, THIAMINE HYDROC [Concomitant]
  8. KAYEXALATE [Concomitant]
  9. NEXIUM [Concomitant]

REACTIONS (2)
  - ABDOMINAL PAIN [None]
  - LIPASE INCREASED [None]
